FAERS Safety Report 24650555 (Version 6)
Quarter: 2025Q1

REPORT INFORMATION
  Report Type: Spontaneous
  Country: US (occurrence: US)
  Receive Date: 20241122
  Receipt Date: 20250129
  Transmission Date: 20250409
  Serious: No
  Sender: BIOVITRUM
  Company Number: US-BIOVITRUM-2024-US-013857

PATIENT
  Age: 50 Year
  Sex: Male

DRUGS (1)
  1. VONJO [Suspect]
     Active Substance: PACRITINIB
     Indication: Myelofibrosis
     Route: 048
     Dates: start: 20241010

REACTIONS (11)
  - Product dose omission in error [Unknown]
  - Product dose omission issue [Unknown]
  - Weight increased [Unknown]
  - Spleen atrophy [Unknown]
  - Muscle tightness [Recovered/Resolved]
  - Joint swelling [Recovered/Resolved]
  - Ligament sprain [Unknown]
  - Fatigue [Unknown]
  - Nasopharyngitis [Recovered/Resolved]
  - Viral infection [Recovered/Resolved]
  - Insomnia [Unknown]
